FAERS Safety Report 6732922-0 (Version None)
Quarter: 2010Q2

REPORT INFORMATION
  Report Type: 
  Country: None (occurrence: None)
  Receive Date: 20100517
  Receipt Date: 20100505
  Transmission Date: 20101027
  Serious: Yes (Other)
  Sender: FDA-Public Use
  Company Number: 2010-1459

PATIENT
  Age: 64 Year
  Sex: Female
  Weight: 130 kg

DRUGS (3)
  1. DYSPORT [Suspect]
     Indication: SKIN WRINKLING
     Dosage: 120 UNITS (120 UNITS, SINGLE CYCLE), INTRAMUSCULAR
     Route: 030
     Dates: start: 20100409, end: 20100409
  2. LIPITOR [Concomitant]
  3. MULTI-VITAMINS [Concomitant]

REACTIONS (1)
  - EYELID PTOSIS [None]
